FAERS Safety Report 19592698 (Version 1)
Quarter: 2021Q3

REPORT INFORMATION
  Report Type: Spontaneous
  Country: US (occurrence: US)
  Receive Date: 20210721
  Receipt Date: 20210721
  Transmission Date: 20211014
  Serious: Yes (Life-Threatening, Other)
  Sender: FDA-Public Use
  Company Number: None

PATIENT
  Age: 45 Year
  Sex: Male
  Weight: 85.5 kg

DRUGS (3)
  1. BABY ASA [Concomitant]
     Active Substance: ASPIRIN
  2. CHANTIX [Suspect]
     Active Substance: VARENICLINE TARTRATE
     Indication: EX-TOBACCO USER
     Dosage: ?          QUANTITY:2 TABLET(S);OTHER FREQUENCY:1/DAY, THEN 2/DAY;?
     Route: 048
     Dates: start: 20210624, end: 20210714
  3. ZOLOFT [Concomitant]
     Active Substance: SERTRALINE HYDROCHLORIDE

REACTIONS (6)
  - Mental status changes [None]
  - Aggression [None]
  - Anger [None]
  - Therapy cessation [None]
  - Recalled product administered [None]
  - Amnesia [None]

NARRATIVE: CASE EVENT DATE: 20210718
